FAERS Safety Report 6313201-2 (Version None)
Quarter: 2009Q3

REPORT INFORMATION
  Report Type: 
  Country: None (occurrence: None)
  Receive Date: 20090814
  Receipt Date: 20090724
  Transmission Date: 20100115
  Serious: Yes (Hospitalization)
  Sender: FDA-Public Use
  Company Number: 230493K09BRA

PATIENT
  Age: 57 Year
  Sex: Female

DRUGS (6)
  1. REBIF [Suspect]
     Indication: RELAPSING-REMITTING MULTIPLE SCLEROSIS
     Dosage: 44 MCG, 3 IN 1 WEEKS
     Dates: start: 20040601
  2. RIVOTRIL (CLONAZEPAM) [Concomitant]
  3. TEGRETOL SR (CARBAMAZEPINE) [Concomitant]
  4. PONDERA [PONDERAL] (FENFLURAMINE HYDROCHLORIDE) [Concomitant]
  5. HYPERTENSIVE DRUS (ALL OTHER THERAPEUTIC PRODUCTS) [Concomitant]
  6. LITHIUM CARBONATE [Concomitant]

REACTIONS (7)
  - AMNESIA [None]
  - CHILLS [None]
  - CRYING [None]
  - DIZZINESS [None]
  - FEAR [None]
  - HYPERSOMNIA [None]
  - PANIC ATTACK [None]
